FAERS Safety Report 6881337-3 (Version None)
Quarter: 2010Q3

REPORT INFORMATION
  Report Type: 
  Country: None (occurrence: None)
  Receive Date: 20100728
  Receipt Date: 20100715
  Transmission Date: 20110219
  Serious: Yes (Other)
  Sender: FDA-Public Use
  Company Number: GR-GENENTECH-289688

PATIENT
  Age: 71 Year
  Sex: Male

DRUGS (2)
  1. LUCENTIS [Suspect]
     Indication: MACULAR DEGENERATION
     Route: 031
  2. TOBRAMYCIN [Concomitant]
     Indication: PRODUCT USED FOR UNKNOWN INDICATION

REACTIONS (8)
  - CONJUNCTIVAL FILTERING BLEB LEAK [None]
  - CORNEAL OEDEMA [None]
  - EYE OPERATION [None]
  - HYPOTONY OF EYE [None]
  - LACRIMATION INCREASED [None]
  - OCULAR DISCOMFORT [None]
  - VISION BLURRED [None]
  - VISUAL ACUITY REDUCED [None]
